FAERS Safety Report 22635241 (Version 1)
Quarter: 2023Q2

REPORT INFORMATION
  Report Type: Other
  Country: ES (occurrence: None)
  Receive Date: 20230623
  Receipt Date: 20230623
  Transmission Date: 20230722
  Serious: Yes (Other)
  Sender: FDA-Public Use
  Company Number: ES-ROCHE-3360994

PATIENT
  Sex: Female

DRUGS (2)
  1. PRALSETINIB [Suspect]
     Active Substance: PRALSETINIB
     Indication: Thyroid cancer
     Route: 048
     Dates: end: 20230131
  2. PREDNISONE [Concomitant]
     Active Substance: PREDNISONE
     Dates: end: 20230405

REACTIONS (2)
  - Toxicity to various agents [Unknown]
  - Organising pneumonia [Unknown]
